FAERS Safety Report 12523172 (Version 4)
Quarter: 2017Q4

REPORT INFORMATION
  Report Type: Report from Study
  Country: JP (occurrence: JP)
  Receive Date: 20160701
  Receipt Date: 20171215
  Transmission Date: 20180320
  Serious: Yes (Hospitalization, Other)
  Sender: FDA-Public Use
  Company Number: JP-AMGEN-JPNNI2016086065

PATIENT
  Age: 27 Year
  Sex: Female
  Weight: 51 kg

DRUGS (31)
  1. ADRIACIN [Concomitant]
     Active Substance: DOXORUBICIN HYDROCHLORIDE
     Dosage: 75 MG, UNK
     Route: 041
     Dates: start: 20160506, end: 20160506
  2. ENDOXAN                            /00021101/ [Concomitant]
     Active Substance: CYCLOPHOSPHAMIDE
     Indication: NON-HODGKIN^S LYMPHOMA
     Dosage: 1100 MG, UNK
     Route: 041
     Dates: start: 20160322, end: 20160322
  3. VEPESID [Concomitant]
     Active Substance: ETOPOSIDE
     Indication: NON-HODGKIN^S LYMPHOMA
     Dosage: 150 MG, UNK
     Route: 041
     Dates: start: 20160322, end: 20160324
  4. KETOPROFEN. [Concomitant]
     Active Substance: KETOPROFEN
     Indication: BACK PAIN
     Dosage: UNK
     Route: 062
  5. BAKTAR [Concomitant]
     Active Substance: SULFAMETHOXAZOLE\TRIMETHOPRIM
     Dosage: UNK
     Route: 048
  6. WYPAX [Concomitant]
     Active Substance: LORAZEPAM
     Dosage: UNK
     Route: 048
  7. MAGMITT [Concomitant]
     Active Substance: MAGNESIUM OXIDE
     Dosage: UNK
     Route: 048
  8. KETOPROFEN. [Concomitant]
     Active Substance: KETOPROFEN
     Indication: BACK PAIN
     Dosage: UNK
     Route: 062
  9. ADRIACIN [Concomitant]
     Active Substance: DOXORUBICIN HYDROCHLORIDE
     Indication: NON-HODGKIN^S LYMPHOMA
     Dosage: 75 MG, UNK
     Route: 041
     Dates: start: 20160322, end: 20160322
  10. PREDONINE [Concomitant]
     Active Substance: PREDNISOLONE
     Indication: NON-HODGKIN^S LYMPHOMA
     Dosage: 100 MG, UNK
     Route: 065
     Dates: start: 20160322, end: 20160326
  11. CALONAL [Concomitant]
     Active Substance: ACETAMINOPHEN
     Dosage: UNK
     Route: 048
  12. PEGFILGRASTIM [Suspect]
     Active Substance: PEGFILGRASTIM
     Dosage: 3.2 MG, UNK
     Route: 058
     Dates: start: 20160418
  13. PEGFILGRASTIM [Suspect]
     Active Substance: PEGFILGRASTIM
     Dosage: 3.2 MG, UNK
     Route: 058
     Dates: start: 20160509
  14. VEPESID [Concomitant]
     Active Substance: ETOPOSIDE
     Dosage: 150 MG, UNK
     Route: 041
     Dates: start: 20160414, end: 20160416
  15. PREDONINE [Concomitant]
     Active Substance: PREDNISOLONE
     Dosage: 100 MG, UNK
     Route: 065
     Dates: start: 20160506, end: 20160510
  16. BAKTAR [Concomitant]
     Active Substance: SULFAMETHOXAZOLE\TRIMETHOPRIM
     Dosage: UNK
     Route: 048
  17. PEGFILGRASTIM [Suspect]
     Active Substance: PEGFILGRASTIM
     Indication: COLONY STIMULATING FACTOR PROPHYLAXIS
     Dosage: 3.2 MG, UNK
     Route: 058
     Dates: start: 20160326
  18. ONCOVIN [Concomitant]
     Active Substance: VINCRISTINE SULFATE
     Dosage: 2 MG, UNK
     Route: 041
     Dates: start: 20160414, end: 20160414
  19. ADRIACIN [Concomitant]
     Active Substance: DOXORUBICIN HYDROCHLORIDE
     Dosage: 75 MG, UNK
     Route: 041
     Dates: start: 20160414, end: 20160414
  20. MAGMITT [Concomitant]
     Active Substance: MAGNESIUM OXIDE
     Dosage: UNK
     Route: 048
  21. AZUNOL                             /00317302/ [Concomitant]
     Dosage: UNK
     Route: 049
  22. ONCOVIN [Concomitant]
     Active Substance: VINCRISTINE SULFATE
     Indication: NON-HODGKIN^S LYMPHOMA
     Dosage: 2 MG, UNK
     Route: 041
     Dates: start: 20160322, end: 20160322
  23. ENDOXAN                            /00021101/ [Concomitant]
     Active Substance: CYCLOPHOSPHAMIDE
     Dosage: 1100 MG, UNK
     Route: 041
     Dates: start: 20160414, end: 20160414
  24. ENDOXAN                            /00021101/ [Concomitant]
     Active Substance: CYCLOPHOSPHAMIDE
     Dosage: 1100 MG, UNK
     Route: 041
     Dates: start: 20160506, end: 20160506
  25. VEPESID [Concomitant]
     Active Substance: ETOPOSIDE
     Dosage: 150 MG, UNK
     Route: 041
     Dates: start: 20160506, end: 20160508
  26. TAKEPRON [Concomitant]
     Active Substance: LANSOPRAZOLE
     Dosage: UNK
     Route: 048
  27. TAKEPRON [Concomitant]
     Active Substance: LANSOPRAZOLE
     Dosage: UNK
     Route: 048
  28. CALONAL [Concomitant]
     Active Substance: ACETAMINOPHEN
     Indication: BACK PAIN
     Dosage: UNK
     Route: 048
  29. EMEND [Concomitant]
     Active Substance: APREPITANT
     Dosage: UNK
     Route: 048
  30. ONCOVIN [Concomitant]
     Active Substance: VINCRISTINE SULFATE
     Dosage: 2 MG, UNK
     Route: 041
     Dates: start: 20160506, end: 20160506
  31. PREDONINE [Concomitant]
     Active Substance: PREDNISOLONE
     Dosage: 100 MG, UNK
     Route: 065
     Dates: start: 20160414, end: 20160418

REACTIONS (1)
  - Appendicitis [Recovered/Resolved]

NARRATIVE: CASE EVENT DATE: 20160519
